FAERS Safety Report 8003998-8 (Version None)
Quarter: 2011Q4

REPORT INFORMATION
  Report Type: 
  Country: None (occurrence: None)
  Receive Date: 20111222
  Receipt Date: 20111220
  Transmission Date: 20120403
  Serious: Yes (Hospitalization, Other)
  Sender: FDA-Public Use
  Company Number: BR-ROCHE-748317

PATIENT
  Sex: Female
  Weight: 60 kg

DRUGS (11)
  1. ACETAMINOPHEN AND TRAMADOL HCL [Concomitant]
  2. ULTRACET [Concomitant]
     Dosage: DOSE: 37.5-325 MG
  3. FOLIC ACID [Concomitant]
  4. LYRICA [Concomitant]
  5. CALCORT [Concomitant]
  6. AMYTRIL [Concomitant]
  7. COMBIRON FOLIC [Concomitant]
  8. MABTHERA [Suspect]
     Indication: RHEUMATOID ARTHRITIS
     Dosage: INDICATION:LUPUS,ROUTE:ENDOVENOUS,FORM:INFUSION,DOSE: 500 MG/50 ML,FREQUENCY:1000 MG/INFUSION
     Route: 042
     Dates: start: 20091231, end: 20100122
  9. METHOTREXATE [Concomitant]
  10. HYDROXYCHLOROQUINE SULFATE [Concomitant]
     Dosage: DRUG: REUQUINOL
  11. METICORTEN [Concomitant]
     Indication: PREMEDICATION

REACTIONS (5)
  - CERVICAL DYSPLASIA [None]
  - MYALGIA [None]
  - HAEMOLYTIC ANAEMIA [None]
  - ILL-DEFINED DISORDER [None]
  - UTERINE NEOPLASM [None]
